FAERS Safety Report 8223704-1 (Version None)
Quarter: 2012Q1

REPORT INFORMATION
  Report Type: 
  Country: None (occurrence: None)
  Receive Date: 20120321
  Receipt Date: 20120309
  Transmission Date: 20120608
  Serious: Yes (Other)
  Sender: FDA-Public Use
  Company Number: US-MYLANLABS-2012S1002769

PATIENT
  Sex: Male

DRUGS (8)
  1. ASCORBIC ACID [Concomitant]
  2. AMITRIPTYLINE HCL [Suspect]
     Indication: DEPRESSION
     Dates: end: 20050101
  3. PRILOSEC [Concomitant]
  4. ASPIRIN [Concomitant]
  5. AMITRIPTYLINE HCL [Suspect]
     Dates: start: 20050901, end: 20120229
  6. AMITRIPTYLINE HCL [Suspect]
     Dates: start: 20050901, end: 20120229
  7. AMITRIPTYLINE HCL [Suspect]
     Indication: ANXIETY
     Dates: end: 20050101
  8. FISH OIL [Concomitant]

REACTIONS (3)
  - DRUG DEPENDENCE [None]
  - POLLAKIURIA [None]
  - FORMICATION [None]
